FAERS Safety Report 8977977 (Version 4)
Quarter: 2013Q2

REPORT INFORMATION
  Report Type: Report from Study
  Country: JP (occurrence: JP)
  Receive Date: 20121220
  Receipt Date: 20130403
  Transmission Date: 20140414
  Serious: Yes (Death)
  Sender: FDA-Public Use
  Company Number: JP-VERTEX PHARMACEUTICALS INC.-2012-026458

PATIENT
  Age: 46 Year
  Sex: Male

DRUGS (8)
  1. VX-950 (TELAPREVIR) [Suspect]
     Indication: CHRONIC HEPATITIS C
     Dosage: 2250 MG, QD
     Route: 048
     Dates: start: 20120911, end: 20121015
  2. VX-950 (TELAPREVIR) [Suspect]
     Dosage: 1500 MG, QD
     Route: 048
     Dates: start: 20121016, end: 20121203
  3. RIBAVIRIN [Suspect]
     Indication: CHRONIC HEPATITIS C
     Dosage: 800 MG, QD
     Route: 048
     Dates: start: 20120911, end: 20121204
  4. PEGINTERFERON ALFA-2B [Suspect]
     Indication: CHRONIC HEPATITIS C
     Dosage: 1.5 ?G/KG, QW
     Route: 058
     Dates: start: 20120911, end: 20121204
  5. LOXONIN [Concomitant]
     Dosage: 60 MG, PRN
     Route: 048
     Dates: start: 20120911, end: 20121204
  6. MUCOSTA [Concomitant]
     Dosage: 100 MG, PRN
     Route: 048
     Dates: start: 20120911, end: 20121204
  7. LENDORMIN DAINIPPO [Concomitant]
     Dosage: 0.25 MG, QD
     Route: 048
     Dates: start: 20120911, end: 20121204
  8. SOLDEM 1 [Concomitant]
     Dosage: 500 ML, QD
     Route: 041
     Dates: start: 20120911, end: 20120922

REACTIONS (1)
  - Completed suicide [Fatal]
